FAERS Safety Report 6711216-3 (Version None)
Quarter: 2010Q2

REPORT INFORMATION
  Report Type: 
  Country: None (occurrence: None)
  Receive Date: 20100505
  Receipt Date: 20100429
  Transmission Date: 20101027
  Serious: Yes (Hospitalization)
  Sender: FDA-Public Use
  Company Number: CN-ASTRAZENECA-2010SE19641

PATIENT
  Sex: Female

DRUGS (2)
  1. PULMICORT [Suspect]
     Indication: ASTHMA
     Route: 055
     Dates: start: 20050101
  2. PULMICORT [Suspect]
     Route: 055
     Dates: start: 20100130, end: 20100425

REACTIONS (2)
  - ASTHMA [None]
  - DRUG INEFFECTIVE [None]
